FAERS Safety Report 8936575 (Version 2)
Quarter: 2012Q4

REPORT INFORMATION
  Report Type: Report from Study
  Country: IT (occurrence: IT)
  Receive Date: 20121130
  Receipt Date: 20121211
  Transmission Date: 20130627
  Serious: Yes (Hospitalization)
  Sender: FDA-Public Use
  Company Number: IT-PFIZER INC-2012235725

PATIENT
  Age: 70 Year
  Sex: Female
  Weight: 77 kg

DRUGS (6)
  1. TOFACITINIB CITRATE [Suspect]
     Indication: RHEUMATOID ARTHRITIS
     Dosage: 10 mg, BID
     Route: 048
     Dates: start: 20101103, end: 20120710
  2. METHOTREXATE [Concomitant]
     Indication: RHEUMATOID ARTHRITIS
     Dosage: 15 mg, weekly
     Route: 030
     Dates: start: 201006, end: 20120710
  3. LEDERFOLIN [Concomitant]
     Indication: RHEUMATOID ARTHRITIS
     Dosage: 7.5 mg, weekly
     Route: 048
     Dates: start: 201006, end: 20120710
  4. TAVOR [Concomitant]
     Indication: ANXIETY
     Dosage: 1 mg, daily
     Route: 048
     Dates: start: 2009, end: 20120710
  5. NORVASC [Concomitant]
     Indication: HYPERTENSION
     Dosage: 7.5 mg, daily
     Route: 048
     Dates: start: 2008, end: 20120710
  6. ATENOLOL [Concomitant]
     Indication: HYPERTENSION
     Dosage: 25 mg, daily
     Route: 048
     Dates: start: 2008, end: 20120710

REACTIONS (2)
  - Transient ischaemic attack [Recovered/Resolved]
  - Cerebral arteriosclerosis [Recovered/Resolved]
